FAERS Safety Report 6760652-8 (Version None)
Quarter: 2010Q2

REPORT INFORMATION
  Report Type: 
  Country: None (occurrence: None)
  Receive Date: 20100607
  Receipt Date: 20100607
  Transmission Date: 20101027
  Serious: Yes (Hospitalization)
  Sender: FDA-Public Use
  Company Number: None

PATIENT
  Age: 38 Year
  Sex: Male
  Weight: 92.9874 kg

DRUGS (4)
  1. MOXIFLOXACIN [Suspect]
     Indication: BRONCHITIS
     Dosage: 400MG DAILY PO
     Route: 048
     Dates: start: 20100524, end: 20100602
  2. MOXIFLOXACIN [Suspect]
     Indication: EAR INFECTION
     Dosage: 400MG DAILY PO
     Route: 048
     Dates: start: 20100524, end: 20100602
  3. MOXIFLOXACIN [Suspect]
     Indication: PHARYNGITIS
     Dosage: 400MG DAILY PO
     Route: 048
     Dates: start: 20100524, end: 20100602
  4. MOXIFLOXACIN [Suspect]
     Indication: RHINITIS
     Dosage: 400MG DAILY PO
     Route: 048
     Dates: start: 20100524, end: 20100602

REACTIONS (5)
  - HYPOTENSION [None]
  - RASH [None]
  - RESPIRATORY DISTRESS [None]
  - SWELLING FACE [None]
  - VOMITING [None]
